FAERS Safety Report 10920657 (Version 1)
Quarter: 2015Q1

REPORT INFORMATION
  Report Type: Spontaneous
  Country: US (occurrence: None)
  Receive Date: 20150313
  Receipt Date: 20150313
  Transmission Date: 20150721
  Serious: No
  Sender: FDA-Public Use
  Company Number: None

PATIENT
  Age: 70 Year
  Sex: Female
  Weight: 49.9 kg

DRUGS (32)
  1. CALCIUM + D [Concomitant]
     Active Substance: CALCIUM\VITAMIN D
  2. TURMERIC [Concomitant]
     Active Substance: TURMERIC
  3. OMEPRAZOLE. [Concomitant]
     Active Substance: OMEPRAZOLE
  4. EVISTA [Concomitant]
     Active Substance: RALOXIFENE HYDROCHLORIDE
  5. RESVERATOL [Concomitant]
  6. DIGESTIVE ENZYMES [Concomitant]
     Active Substance: UNSPECIFIED INGREDIENT
  7. SPIRIVA [Concomitant]
     Active Substance: TIOTROPIUM BROMIDE MONOHYDRATE
  8. MULTIVITAMIN [Concomitant]
     Active Substance: VITAMINS
  9. VITAMIN B COMPLEX [Concomitant]
     Active Substance: CYANOCOBALAMIN\DEXPANTHENOL\NIACINAMIDE\PYRIDOXINE HYDROCHLORIDE\RIBOFLAVIN 5^-PHOSPHATE SODIUM\THIAMINE HYDROCHLORIDE\VITAMIN B COMPLEX
  10. VITAMIN D [Concomitant]
     Active Substance: CHOLECALCIFEROL
  11. BORON COMPLEX [Concomitant]
  12. ZINC [Concomitant]
     Active Substance: ZINC\ZINC CHLORIDE
  13. COENZYME Q10 [Concomitant]
     Active Substance: UBIDECARENONE
  14. CINNAMON. [Concomitant]
     Active Substance: CINNAMON
  15. AMOXICILLIN. [Suspect]
     Active Substance: AMOXICILLIN
     Indication: ASTHMA
     Dosage: TAKEN BY MOUTH
     Dates: start: 20150306, end: 20150312
  16. HYDROCHLOROTHIAZIDE WITH TRIAMTERENE [Concomitant]
     Active Substance: HYDROCHLOROTHIAZIDE\TRIAMTERENE
  17. DYMISTA [Concomitant]
     Active Substance: AZELASTINE HYDROCHLORIDE\FLUTICASONE PROPIONATE
  18. EPIPEN [Concomitant]
     Active Substance: EPINEPHRINE
  19. MANGANESE [Concomitant]
     Active Substance: MANGANESE\MANGANESE CHLORIDE
  20. LEVOTHYROXINE [Concomitant]
     Active Substance: LEVOTHYROXINE
  21. FISH OIL [Concomitant]
     Active Substance: FISH OIL
  22. MAGNESIUM CITRATE. [Concomitant]
     Active Substance: MAGNESIUM CITRATE
  23. ATORVASTATIN [Concomitant]
     Active Substance: ATORVASTATIN
  24. PROBIOTIC ACIDOPHILUS [Concomitant]
     Active Substance: LACTOBACILLUS ACIDOPHILUS
  25. VITAMIN K2 [Concomitant]
     Active Substance: MENAQUINONE 6
  26. VITAMIN C [Concomitant]
     Active Substance: ASCORBIC ACID
  27. ASTAXANTHIN [Concomitant]
  28. MILK THISTLE [Concomitant]
     Active Substance: MILK THISTLE
  29. XLEAR [Concomitant]
  30. MELOXICAM. [Concomitant]
     Active Substance: MELOXICAM
  31. FLECTOR [Concomitant]
     Active Substance: DICLOFENAC EPOLAMINE
  32. DHEA [Concomitant]
     Active Substance: DEHYDROEPIANDROSTERONE-3-SULFATE SODIUM

REACTIONS (12)
  - Dry eye [None]
  - Dry mouth [None]
  - Disorientation [None]
  - Feeling abnormal [None]
  - Weight decreased [None]
  - Dizziness [None]
  - Tinnitus [None]
  - Depression [None]
  - Fatigue [None]
  - Insomnia [None]
  - Decreased appetite [None]
  - Headache [None]

NARRATIVE: CASE EVENT DATE: 20150302
